FAERS Safety Report 19402838 (Version 1)
Quarter: 2021Q2

REPORT INFORMATION
  Report Type: Spontaneous
  Country: BA (occurrence: BA)
  Receive Date: 20210610
  Receipt Date: 20210610
  Transmission Date: 20210717
  Serious: Yes (Death, Hospitalization, Other)
  Sender: FDA-Public Use
  Company Number: BA-INCYTE CORPORATION-2021IN005024

PATIENT

DRUGS (1)
  1. JAKAVI [Suspect]
     Active Substance: RUXOLITINIB
     Indication: PRIMARY MYELOFIBROSIS
     Dosage: 15 MG, BID
     Route: 065
     Dates: start: 2019

REACTIONS (3)
  - COVID-19 pneumonia [Fatal]
  - Cardiopulmonary failure [Fatal]
  - Haemoglobin decreased [Recovered/Resolved]
